FAERS Safety Report 4407630-1 (Version None)
Quarter: 2004Q3

REPORT INFORMATION
  Report Type: 
  Country: None (occurrence: None)
  Receive Date: 20040721
  Receipt Date: 20040712
  Transmission Date: 20050211
  Serious: Yes (Death, Other)
  Sender: FDA-Public Use
  Company Number: 2004IC000343

PATIENT
  Age: 58 Year
  Sex: Female

DRUGS (3)
  1. FLUOROURACIL [Suspect]
     Indication: METASTASES TO BONE
     Dosage: INTRAVENOUS
     Route: 042
  2. MITOMYCIN [Suspect]
     Indication: METASTASES TO BONE
     Dosage: INTRAVENOUS
     Route: 042
  3. TRASTUZUMAB [Concomitant]

REACTIONS (2)
  - LYMPHANGIOSIS CARCINOMATOSA [None]
  - THROMBOTIC MICROANGIOPATHY [None]
